FAERS Safety Report 23820081 (Version 4)
Quarter: 2024Q2

REPORT INFORMATION
  Report Type: Spontaneous
  Country: IT (occurrence: IT)
  Receive Date: 20240506
  Receipt Date: 20240523
  Transmission Date: 20240717
  Serious: Yes (Other)
  Sender: FDA-Public Use
  Company Number: None

PATIENT
  Age: 83 Year
  Sex: Male
  Weight: 78 kg

DRUGS (16)
  1. OXALIPLATIN [Suspect]
     Active Substance: OXALIPLATIN
     Indication: Metastases to liver
     Dosage: 100MG/M2 EVERY 14 DAYS/AT DOSES REDUCED BY 20% FOR 9 CYCLES
     Route: 042
     Dates: start: 201806, end: 2018
  2. OXALIPLATIN [Suspect]
     Active Substance: OXALIPLATIN
     Indication: Adenocarcinoma of colon
     Dosage: AT DOSES REDUCED BY 20% FOR 9 CYCLES
     Route: 042
     Dates: start: 201806, end: 2018
  3. OXALIPLATIN [Suspect]
     Active Substance: OXALIPLATIN
     Indication: Metastases to lymph nodes
  4. OXALIPLATIN [Suspect]
     Active Substance: OXALIPLATIN
     Indication: Colorectal cancer metastatic
  5. PANITUMUMAB [Suspect]
     Active Substance: PANITUMUMAB
     Indication: Adenocarcinoma of colon
     Dosage: 12 CYCLES/6MG/KG EVERY 14 DAYS
     Route: 042
     Dates: start: 201806, end: 201812
  6. PANITUMUMAB [Suspect]
     Active Substance: PANITUMUMAB
     Indication: Metastases to liver
  7. PANITUMUMAB [Suspect]
     Active Substance: PANITUMUMAB
     Indication: Colorectal cancer metastatic
  8. PANITUMUMAB [Suspect]
     Active Substance: PANITUMUMAB
     Indication: Metastases to lymph nodes
  9. FLUOROURACIL [Suspect]
     Active Substance: FLUOROURACIL
     Indication: Metastases to lymph nodes
     Dosage: CI 2400MG EVERY 14 DAYS/AT DOSES REDUCED BY 20% FOR 9 CYCLES
     Dates: start: 201806, end: 2018
  10. FLUOROURACIL [Suspect]
     Active Substance: FLUOROURACIL
     Indication: Metastases to liver
     Dosage: AT DOSES REDUCED BY 20% FOR 9 CYCLES
     Dates: start: 201806, end: 2018
  11. FLUOROURACIL [Suspect]
     Active Substance: FLUOROURACIL
     Indication: Colorectal cancer metastatic
  12. FLUOROURACIL [Suspect]
     Active Substance: FLUOROURACIL
     Indication: Adenocarcinoma of colon
  13. LEUCOVORIN [Suspect]
     Active Substance: LEUCOVORIN\LEUCOVORIN CALCIUM
     Indication: Metastases to lymph nodes
     Dosage: 100MG/M2 EVERY 14 DAYS/AT DOSES REDUCED BY 20% FOR 9 CYCLES
     Route: 042
     Dates: start: 201806, end: 2018
  14. LEUCOVORIN [Suspect]
     Active Substance: LEUCOVORIN\LEUCOVORIN CALCIUM
     Indication: Metastases to liver
     Dosage: AT DOSES REDUCED BY 20% FOR 9 CYCLES
     Route: 042
     Dates: start: 201806, end: 2018
  15. LEUCOVORIN [Suspect]
     Active Substance: LEUCOVORIN\LEUCOVORIN CALCIUM
     Indication: Colorectal cancer metastatic
  16. LEUCOVORIN [Suspect]
     Active Substance: LEUCOVORIN\LEUCOVORIN CALCIUM
     Indication: Adenocarcinoma of colon

REACTIONS (5)
  - Rash maculo-papular [Recovered/Resolved]
  - Paronychia [Recovered/Resolved]
  - Photophobia [Recovered/Resolved]
  - Haematotoxicity [Recovered/Resolved]
  - Conjunctivitis [Recovered/Resolved]

NARRATIVE: CASE EVENT DATE: 20180101
